FAERS Safety Report 8008153-3 (Version None)
Quarter: 2011Q4

REPORT INFORMATION
  Report Type: 
  Country: None (occurrence: None)
  Receive Date: 20111227
  Receipt Date: 20111223
  Transmission Date: 20120403
  Serious: Yes (Other)
  Sender: FDA-Public Use
  Company Number: PHHY2011CA112213

PATIENT

DRUGS (4)
  1. VITAMIN D [Concomitant]
     Dosage: 400 U, BID
     Dates: start: 20061201
  2. CALCIUM ACETATE [Concomitant]
     Dosage: 500 MG, BID
     Dates: start: 20061201
  3. ZOLEDRONOC ACID [Suspect]
     Indication: OSTEOPOROSIS
     Dosage: 5 MG(YEARLY), UNK
     Route: 042
  4. ZOLEDRONOC ACID [Suspect]
     Dosage: 5 MG(YEARLY), UNK
     Route: 042
     Dates: start: 20110805

REACTIONS (1)
  - RIB FRACTURE [None]
